FAERS Safety Report 15723596 (Version 9)
Quarter: 2019Q3

REPORT INFORMATION
  Report Type: Spontaneous
  Country: US (occurrence: US)
  Receive Date: 20181214
  Receipt Date: 20190920
  Transmission Date: 20191004
  Serious: Yes (Hospitalization, Other)
  Sender: FDA-Public Use
  Company Number: US-SA-2018SA342354

PATIENT
  Age: 5 Year
  Sex: Male
  Weight: 24.4 kg

DRUGS (3)
  1. LUMIZYME [Suspect]
     Active Substance: ALGLUCOSIDASE ALFA
     Indication: GLYCOGEN STORAGE DISEASE TYPE II
     Dosage: 26.3 MG/KG, QW
     Route: 042
     Dates: start: 20160101
  2. LUMIZYME [Suspect]
     Active Substance: ALGLUCOSIDASE ALFA
     Dosage: 19.33 MG, QOW
     Route: 042
     Dates: start: 20160412
  3. LUMIZYME [Suspect]
     Active Substance: ALGLUCOSIDASE ALFA
     Dosage: 30 MG/KG, QW
     Route: 042

REACTIONS (13)
  - Cardiac failure [Unknown]
  - Hypothermia [Unknown]
  - Brain injury [Recovered/Resolved with Sequelae]
  - Device related infection [Unknown]
  - Tracheostomy tube removal [Recovered/Resolved with Sequelae]
  - Respiratory failure [Unknown]
  - Intracardiac thrombus [Unknown]
  - Seizure [Unknown]
  - Weight increased [Unknown]
  - Bacterial tracheitis [Unknown]
  - Malaise [Unknown]
  - Heart rate decreased [Unknown]
  - Unevaluable event [Recovered/Resolved]

NARRATIVE: CASE EVENT DATE: 20181127
